FAERS Safety Report 5355319-7 (Version None)
Quarter: 2007Q2

REPORT INFORMATION
  Report Type: 
  Country: None (occurrence: None)
  Receive Date: 20070601
  Receipt Date: 20070322
  Transmission Date: 20071010
  Serious: No
  Sender: FDA-Public Use
  Company Number: S07-USA-01277-01

PATIENT
  Age: 31 Year
  Sex: Female
  Weight: 76.2043 kg

DRUGS (6)
  1. CAMPRAL [Suspect]
     Indication: ALCOHOLISM
     Dosage: 666 MG TID PO
     Route: 048
     Dates: start: 20061119, end: 20061128
  2. LEXAPRO [Concomitant]
  3. WELLBUTRIN [Concomitant]
  4. XANAX [Concomitant]
  5. MULTI-VITAMIN [Concomitant]
  6. SUPER B COMPLEX [Concomitant]

REACTIONS (1)
  - AMNESIA [None]
